FAERS Safety Report 7075621-0 (Version None)
Quarter: 2010Q4

REPORT INFORMATION
  Report Type: 
  Country: None (occurrence: None)
  Receive Date: 20101030
  Receipt Date: 20101019
  Transmission Date: 20110411
  Serious: No
  Sender: FDA-Public Use
  Company Number: US-WYE-H18231910

PATIENT
  Sex: Female
  Weight: 70.37 kg

DRUGS (6)
  1. PRISTIQ [Suspect]
     Indication: DEPRESSION
     Dates: start: 20100801, end: 20101018
  2. DIGOXIN [Concomitant]
  3. NEXIUM [Concomitant]
  4. REGLAN [Concomitant]
  5. FLEXERIL [Concomitant]
  6. PLAVIX [Concomitant]

REACTIONS (1)
  - ALOPECIA [None]
